FAERS Safety Report 5007675-7 (Version None)
Quarter: 2006Q2

REPORT INFORMATION
  Report Type: 
  Country: None (occurrence: None)
  Receive Date: 20060522
  Receipt Date: 20060510
  Transmission Date: 20061013
  Serious: Yes (Other)
  Sender: FDA-Public Use
  Company Number: 2006AP02204

PATIENT
  Age: 20 Year
  Sex: Female

DRUGS (7)
  1. ACCOLATE [Suspect]
     Route: 048
  2. ACCOLATE [Suspect]
     Route: 048
     Dates: start: 20060510, end: 20060510
  3. CEFZON [Concomitant]
     Route: 048
     Dates: start: 20060510
  4. EVE [Concomitant]
     Route: 048
     Dates: start: 20060510
  5. BUFFERIN A [Concomitant]
     Route: 048
     Dates: start: 20060510
  6. COLAC [Concomitant]
     Route: 048
     Dates: start: 20060510
  7. COCCOAPO A [Concomitant]
     Route: 048
     Dates: start: 20060510

REACTIONS (2)
  - HEADACHE [None]
  - INTENTIONAL OVERDOSE [None]
